FAERS Safety Report 5822468-6 (Version None)
Quarter: 2008Q3

REPORT INFORMATION
  Report Type: 
  Country: None (occurrence: None)
  Receive Date: 20080725
  Receipt Date: 20080208
  Transmission Date: 20090109
  Serious: No
  Sender: FDA-Public Use
  Company Number: US-AMGEN-KDL265202

PATIENT
  Age: 67 Year
  Sex: Male
  Weight: 161.6 kg

DRUGS (1)
  1. PROCRIT [Suspect]
     Indication: PREOPERATIVE CARE
     Route: 058
     Dates: start: 20080202

REACTIONS (1)
  - DRUG INEFFECTIVE [None]
